FAERS Safety Report 13415763 (Version 1)
Quarter: 2017Q2

REPORT INFORMATION
  Report Type: Spontaneous
  Country: CU (occurrence: CU)
  Receive Date: 20170406
  Receipt Date: 20170406
  Transmission Date: 20170830
  Serious: Yes (Other)
  Sender: FDA-Public Use
  Company Number: CU-FRESENIUS KABI-FK201702763

PATIENT
  Age: 46 Year
  Sex: Male

DRUGS (1)
  1. CISPLATIN (MANUFACTURER UNKNOWN) [Suspect]
     Active Substance: CISPLATIN
     Indication: CONJUNCTIVAL NEOPLASM
     Route: 057

REACTIONS (4)
  - Inflammation [Recovered/Resolved]
  - Conjunctival haemorrhage [Recovered/Resolved]
  - Off label use [Unknown]
  - Eye swelling [Recovered/Resolved]
